FAERS Safety Report 12566820 (Version 1)
Quarter: 2016Q3

REPORT INFORMATION
  Report Type: Spontaneous
  Country: US (occurrence: US)
  Receive Date: 20160718
  Receipt Date: 20160718
  Transmission Date: 20161109
  Serious: Yes (Other)
  Sender: FDA-Public Use
  Company Number: US-TEVA-677275USA

PATIENT
  Age: 65 Year
  Sex: Male

DRUGS (3)
  1. CYTARABINE. [Suspect]
     Active Substance: CYTARABINE
     Indication: ACUTE MYELOID LEUKAEMIA
     Dosage: 2 GM/M2 OVER 4 HOUR BEGINNING 2 HOURS AFTER THE COMPLETION OF CLADRIBINE; TOTAL 1 CYCLE
     Route: 065
  2. CLADRIBINE. [Suspect]
     Active Substance: CLADRIBINE
     Indication: ACUTE MYELOID LEUKAEMIA
     Dosage: 5 MG/M2 OVER 2 HOUR; TOTAL 1 CYCLE
     Route: 065
  3. IDARUBICIN [Suspect]
     Active Substance: IDARUBICIN
     Dosage: 12 MG/M2 TIMES 3 DAYS, 1 CYCLE
     Route: 065

REACTIONS (1)
  - Pancytopenia [Unknown]
